FAERS Safety Report 4853202-4 (Version None)
Quarter: 2005Q4

REPORT INFORMATION
  Report Type: 
  Country: None (occurrence: None)
  Receive Date: 20051214
  Receipt Date: 19990902
  Transmission Date: 20060501
  Serious: Yes (Hospitalization)
  Sender: FDA-Public Use
  Company Number: US-ROCHE-215084

PATIENT
  Age: 40 Year
  Sex: Female

DRUGS (9)
  1. DEMADEX [Suspect]
     Indication: VASODILATATION
     Route: 065
  2. PLACEBO [Suspect]
     Route: 048
     Dates: start: 19990510, end: 19990617
  3. PLACEBO [Suspect]
     Dosage: DOSE LEVEL 4.
     Route: 048
     Dates: start: 19990618
  4. ALDACTONE [Suspect]
     Indication: DRUG USE FOR UNKNOWN INDICATION
     Route: 065
  5. CAPOTEN [Suspect]
     Indication: DRUG USE FOR UNKNOWN INDICATION
     Route: 065
  6. COUMADIN [Concomitant]
  7. ISORDIL [Concomitant]
  8. MAGNESIUM [Concomitant]
  9. PROVERA [Concomitant]

REACTIONS (2)
  - SYNCOPE [None]
  - VENTRICULAR TACHYCARDIA [None]
